FAERS Safety Report 9049404 (Version 4)
Quarter: 2013Q4

REPORT INFORMATION
  Report Type: Spontaneous
  Country: JP (occurrence: JP)
  Receive Date: 20130205
  Receipt Date: 20131213
  Transmission Date: 20140711
  Serious: Yes (Other)
  Sender: FDA-Public Use
  Company Number: PHHY2013JP009411

PATIENT
  Age: 55 Year
  Sex: Female
  Weight: 39 kg

DRUGS (12)
  1. SANDIMMUN [Suspect]
     Indication: PROPHYLAXIS AGAINST GRAFT VERSUS HOST DISEASE
     Dosage: 90 MG
     Route: 041
  2. SANDIMMUN [Suspect]
     Indication: STEM CELL TRANSPLANT
  3. VORICONAZOLE [Suspect]
     Indication: BRONCHOPULMONARY ASPERGILLOSIS
     Dosage: 100 MG, BID
     Route: 048
  4. VORICONAZOLE [Suspect]
     Dosage: 150 MG, BID
     Route: 048
  5. VORICONAZOLE [Suspect]
     Dosage: 300 MG
  6. PREDONINE [Suspect]
     Indication: RHEUMATOID ARTHRITIS
     Dosage: 5 MG
     Route: 048
  7. SOLU MEDROL [Suspect]
     Indication: APLASTIC ANAEMIA
     Dosage: 40 MG
     Route: 041
  8. MEROPEN [Suspect]
     Indication: FEBRILE NEUTROPENIA
     Dosage: 3 G
     Route: 041
  9. VICCLOX//ACICLOVIR [Concomitant]
     Dosage: 400 MG
     Route: 048
  10. PARIET [Concomitant]
     Dosage: 10 MG
     Route: 048
  11. AMLODIN [Concomitant]
     Dosage: 2.5 MG
     Route: 048
  12. URSO [Concomitant]
     Dosage: 600 MG
     Route: 048

REACTIONS (4)
  - Febrile neutropenia [Recovered/Resolved]
  - Bronchopulmonary aspergillosis [Recovered/Resolved]
  - Drug-induced liver injury [Recovered/Resolved]
  - Pyrexia [Unknown]
